FAERS Safety Report 11436010 (Version 1)
Quarter: 2015Q3

REPORT INFORMATION
  Report Type: Spontaneous
  Country: FR (occurrence: FR)
  Receive Date: 20150831
  Receipt Date: 20150831
  Transmission Date: 20151125
  Serious: Yes (Hospitalization)
  Sender: FDA-Public Use
  Company Number: FR-PFIZER INC-2015282867

PATIENT
  Age: 23 Year
  Sex: Female

DRUGS (2)
  1. PARACETAMOL [Suspect]
     Active Substance: ACETAMINOPHEN
     Dosage: 8 G, SINGLE
     Route: 048
     Dates: start: 20150330, end: 20150330
  2. XANAX [Suspect]
     Active Substance: ALPRAZOLAM
     Dosage: 10 DF OF 0.5 MG, SINGLE
     Route: 048
     Dates: start: 20150330, end: 20150330

REACTIONS (4)
  - Overdose [Recovered/Resolved]
  - Hepatic failure [Recovered/Resolved]
  - Suicidal behaviour [Recovered/Resolved]
  - Hepatocellular injury [Recovered/Resolved]

NARRATIVE: CASE EVENT DATE: 20150330
